FAERS Safety Report 4646694-7 (Version None)
Quarter: 2005Q2

REPORT INFORMATION
  Report Type: 
  Country: None (occurrence: None)
  Receive Date: 20050425
  Receipt Date: 20050414
  Transmission Date: 20051028
  Serious: Yes (Hospitalization)
  Sender: FDA-Public Use
  Company Number: 05P-056-0289803-00

PATIENT
  Age: 65 Year
  Sex: Female

DRUGS (3)
  1. AKINETON [Suspect]
     Indication: PARKINSON'S DISEASE
     Dosage: PER ORAL
     Route: 048
  2. MADOPAR [Suspect]
     Indication: PARKINSON'S DISEASE
     Dosage: PER ORAL
     Route: 048
     Dates: start: 20041210, end: 20041212
  3. PROPRANOLOL [Suspect]
     Dosage: PER ORAL
     Route: 048

REACTIONS (8)
  - BODY TEMPERATURE DECREASED [None]
  - COUGH [None]
  - DYSPHONIA [None]
  - DYSPNOEA [None]
  - HEART RATE DECREASED [None]
  - LARYNGEAL DISORDER [None]
  - RASH PRURITIC [None]
  - URTICARIA [None]
